FAERS Safety Report 13421605 (Version 1)
Quarter: 2017Q2

REPORT INFORMATION
  Report Type: Spontaneous
  Country: US (occurrence: US)
  Receive Date: 20170410
  Receipt Date: 20170410
  Transmission Date: 20170830
  Serious: No
  Sender: FDA-Public Use
  Company Number: US-TEVA-750152USA

PATIENT
  Age: 4 Year
  Sex: Female
  Weight: 14.07 kg

DRUGS (2)
  1. MIRALAX [Concomitant]
     Active Substance: POLYETHYLENE GLYCOL 3350
     Indication: CONSTIPATION
  2. QVAR [Suspect]
     Active Substance: BECLOMETHASONE DIPROPIONATE
     Indication: ASTHMA
     Dates: start: 2016

REACTIONS (6)
  - Wheezing [Not Recovered/Not Resolved]
  - Drug administered to patient of inappropriate age [Unknown]
  - Gastroenteritis viral [Recovered/Resolved]
  - Nasal congestion [Not Recovered/Not Resolved]
  - Dyspnoea [Not Recovered/Not Resolved]
  - Rhinorrhoea [Not Recovered/Not Resolved]

NARRATIVE: CASE EVENT DATE: 20170309
